FAERS Safety Report 8335568-6 (Version None)
Quarter: 2012Q2

REPORT INFORMATION
  Report Type: 
  Country: None (occurrence: None)
  Receive Date: 20120504
  Receipt Date: 20120420
  Transmission Date: 20120825
  Serious: Yes (Death)
  Sender: FDA-Public Use
  Company Number: JP-MYLANLABS-2012S1005553

PATIENT
  Age: 68 Year
  Sex: Female
  Weight: 39.9 kg

DRUGS (2)
  1. EPIRUBICIN [Suspect]
     Indication: BREAST CANCER
     Route: 041
     Dates: start: 20120228, end: 20120228
  2. CYCLOPHOSPHAMIDE [Suspect]
     Indication: BREAST CANCER
     Route: 041
     Dates: start: 20120228, end: 20120228

REACTIONS (14)
  - NAUSEA [None]
  - DYSPNOEA [None]
  - NEUTROPENIA [None]
  - HYPOTENSION [None]
  - OXYGEN SATURATION DECREASED [None]
  - TOXIC EPIDERMAL NECROLYSIS [None]
  - HAEMOGLOBIN DECREASED [None]
  - RESPIRATORY FAILURE [None]
  - CIRCULATORY COLLAPSE [None]
  - RASH VESICULAR [None]
  - TACHYCARDIA [None]
  - WHITE BLOOD CELL COUNT DECREASED [None]
  - PYREXIA [None]
  - SHOCK [None]
